FAERS Safety Report 8523228 (Version 12)
Quarter: 2020Q1

REPORT INFORMATION
  Report Type: Report from Study
  Country: CA (occurrence: CA)
  Receive Date: 20120420
  Receipt Date: 20200130
  Transmission Date: 20200409
  Serious: Yes (Hospitalization, Other)
  Sender: FDA-Public Use
  Company Number: PHHY2012CA032055

PATIENT
  Age: 55 Year
  Sex: Male

DRUGS (11)
  1. CORTISONE [Suspect]
     Active Substance: CORTISONE
     Indication: PRODUCT USED FOR UNKNOWN INDICATION
     Route: 065
  2. SANDOSTATIN LAR DEPOT [Suspect]
     Active Substance: OCTREOTIDE ACETATE
     Dosage: 30 MG, QMO (EVERY 4 WEEKS)
     Route: 030
  3. SANDOSTATIN LAR DEPOT [Suspect]
     Active Substance: OCTREOTIDE ACETATE
     Dosage: 40 MG, QMO, (EVERY 4 WEEKS)
     Route: 030
     Dates: start: 20120413
  4. SANDOSTATIN LAR DEPOT [Suspect]
     Active Substance: OCTREOTIDE ACETATE
     Dosage: 30 MG, QMO (EVERY 4 WEEKS)
     Route: 030
     Dates: start: 201205
  5. CODEINE [Concomitant]
     Active Substance: CODEINE
     Indication: INTERVERTEBRAL DISC PROTRUSION
     Dosage: 100 MG, QD
     Route: 048
  6. SEROQUEL [Concomitant]
     Active Substance: QUETIAPINE FUMARATE
     Indication: INSOMNIA
     Dosage: 150 MG, HS
     Route: 048
  7. SANDOSTATIN LAR DEPOT [Suspect]
     Active Substance: OCTREOTIDE ACETATE
     Dosage: 40 MG, QMO, (EVERY 4 WEEKS)
     Route: 030
     Dates: start: 201207
  8. SANDOSTATIN LAR DEPOT [Suspect]
     Active Substance: OCTREOTIDE ACETATE
     Indication: ACROMEGALY
     Dosage: 20 MG, QMO
     Route: 030
     Dates: start: 20110708
  9. SANDOSTATIN [Suspect]
     Active Substance: OCTREOTIDE ACETATE
     Indication: ACROMEGALY
     Dosage: 500 UG, TID
     Route: 058
     Dates: start: 2010, end: 201107
  10. GABAPENTIN. [Concomitant]
     Active Substance: GABAPENTIN
     Indication: INTERVERTEBRAL DISC PROTRUSION
     Dosage: 300 MG, QID
     Route: 065
  11. CYCLOBENZAPRINE. [Concomitant]
     Active Substance: CYCLOBENZAPRINE
     Indication: INSOMNIA
     Dosage: 10 MG, QHS
     Route: 048

REACTIONS (53)
  - Hepatomegaly [Unknown]
  - Neck pain [Unknown]
  - Back pain [Recovered/Resolved]
  - Pain [Unknown]
  - Pain in extremity [Recovering/Resolving]
  - Decreased appetite [Unknown]
  - Syringe issue [Unknown]
  - Productive cough [Recovering/Resolving]
  - Haemoptysis [Unknown]
  - Muscular dystrophy [Unknown]
  - Sexually inappropriate behaviour [Unknown]
  - Musculoskeletal pain [Unknown]
  - Cough [Unknown]
  - Amnesia [Unknown]
  - Poor quality sleep [Unknown]
  - Pollakiuria [Not Recovered/Not Resolved]
  - Headache [Not Recovered/Not Resolved]
  - Dyspnoea [Unknown]
  - Vomiting [Unknown]
  - Abdominal distension [Unknown]
  - Rectal haemorrhage [Unknown]
  - Balance disorder [Unknown]
  - Movement disorder [Unknown]
  - Myalgia [Recovering/Resolving]
  - Blood pressure increased [Unknown]
  - Abdominal pain [Unknown]
  - Daydreaming [Unknown]
  - Erythema [Unknown]
  - Weight decreased [Unknown]
  - Influenza like illness [Unknown]
  - Heart rate increased [Unknown]
  - Dizziness [Unknown]
  - Fatigue [Unknown]
  - Acute coronary syndrome [Unknown]
  - Pyrexia [Recovered/Resolved]
  - Rhinorrhoea [Recovering/Resolving]
  - Burning sensation [Not Recovered/Not Resolved]
  - Nasopharyngitis [Unknown]
  - Nausea [Unknown]
  - Nephrolithiasis [Unknown]
  - Skin induration [Unknown]
  - Orthostatic hypotension [Unknown]
  - Speech disorder [Unknown]
  - Visual impairment [Unknown]
  - Drug hypersensitivity [Unknown]
  - Chest pain [Unknown]
  - Coronary artery occlusion [Unknown]
  - Blood growth hormone increased [Unknown]
  - Road traffic accident [Unknown]
  - Blood pressure systolic increased [Unknown]
  - Musculoskeletal chest pain [Unknown]
  - Body temperature decreased [Unknown]
  - Product use complaint [Unknown]

NARRATIVE: CASE EVENT DATE: 20120407
